FAERS Safety Report 11027022 (Version 1)
Quarter: 2015Q2

REPORT INFORMATION
  Report Type: Report from Study
  Country: BR (occurrence: BR)
  Receive Date: 20150414
  Receipt Date: 20150414
  Transmission Date: 20150821
  Serious: Yes (Other)
  Sender: FDA-Public Use
  Company Number: BR-ABBVIE-10P-020-0623116-00

PATIENT
  Age: 64 Year
  Sex: Female
  Weight: 60 kg

DRUGS (15)
  1. ENDOCLORANA [Concomitant]
     Indication: HYPERTENSION
     Route: 048
  2. NIOXIL [Concomitant]
     Indication: HYPERTENSION
     Route: 048
  3. DEPURA [Concomitant]
     Active Substance: CHOLECALCIFEROL
     Indication: PRODUCT USED FOR UNKNOWN INDICATION
  4. HYDROCHLOROTHIAZIDE. [Concomitant]
     Active Substance: HYDROCHLOROTHIAZIDE
     Indication: HYPERTENSION
     Route: 048
  5. CHLOROQUINE [Concomitant]
     Active Substance: CHLOROQUINE\CHLOROQUINE PHOSPHATE
     Indication: ARTHRALGIA
  6. CALCIUM + VITAMIN D [Concomitant]
     Active Substance: CALCIUM\VITAMIN D
     Indication: PRODUCT USED FOR UNKNOWN INDICATION
  7. HUMIRA [Suspect]
     Active Substance: ADALIMUMAB
     Indication: RHEUMATOID ARTHRITIS
     Route: 058
     Dates: start: 20070501
  8. METILVITA [Concomitant]
     Indication: HYPERTENSION
     Route: 048
  9. TRAMBENE [Concomitant]
     Indication: PAIN
     Route: 048
  10. EUCIL [Concomitant]
     Indication: HYPERTENSION
     Dosage: 1-2 PER DAY
     Route: 048
  11. HYDROCHLOROTHIAZIDE. [Concomitant]
     Active Substance: HYDROCHLOROTHIAZIDE
     Dosage: 50MG DAILY, 25MG 2 IN 1 DAY
  12. HUMIRA [Suspect]
     Active Substance: ADALIMUMAB
     Route: 058
     Dates: start: 20110516
  13. TRAMBENE [Concomitant]
     Indication: SWELLING
  14. METHYLDOPA. [Concomitant]
     Active Substance: METHYLDOPA
     Indication: HYPERTENSION
     Dosage: 500MG DAILY, 250MG 2 IN 1 DAY
     Route: 048
  15. METHOTREXATE [Concomitant]
     Active Substance: METHOTREXATE
     Indication: PRODUCT USED FOR UNKNOWN INDICATION

REACTIONS (13)
  - Arrhythmia [Unknown]
  - Weight decreased [Recovered/Resolved]
  - Haemorrhage [Unknown]
  - Osteoarthritis [Recovered/Resolved]
  - Joint swelling [Not Recovered/Not Resolved]
  - Memory impairment [Not Recovered/Not Resolved]
  - Blister [Recovered/Resolved]
  - Arthralgia [Recovered/Resolved]
  - Arthritis [Unknown]
  - Gait disturbance [Recovering/Resolving]
  - Arthralgia [Recovering/Resolving]
  - Arthralgia [Not Recovered/Not Resolved]
  - Suture related complication [Unknown]

NARRATIVE: CASE EVENT DATE: 200901
